FAERS Safety Report 7318403-4 (Version None)
Quarter: 2011Q1

REPORT INFORMATION
  Report Type: 
  Country: None (occurrence: None)
  Receive Date: 20110223
  Receipt Date: 20110223
  Transmission Date: 20110831
  Serious: No
  Sender: FDA-Public Use
  Company Number: None

PATIENT
  Age: 37 Year
  Sex: Female

DRUGS (3)
  1. TAMOXIFEN CITRATE [Suspect]
     Dates: start: 20070501, end: 20090212
  2. ZOLADEX [Suspect]
  3. PROTONIX [Suspect]

REACTIONS (5)
  - HEPATITIS [None]
  - LIVER INJURY [None]
  - GLUCOSE TOLERANCE IMPAIRED [None]
  - HEPATIC STEATOSIS [None]
  - HEPATIC FIBROSIS [None]
